FAERS Safety Report 4685982-5 (Version None)
Quarter: 2005Q2

REPORT INFORMATION
  Report Type: 
  Country: None (occurrence: None)
  Receive Date: 20050607
  Receipt Date: 20050607
  Transmission Date: 20051028
  Serious: Yes (Disabling)
  Sender: FDA-Public Use
  Company Number: None

PATIENT
  Age: 18 Year
  Sex: Female

DRUGS (2)
  1. CISPLATIN [Suspect]
     Indication: MEDULLOBLASTOMA
  2. RADIATION [Suspect]

REACTIONS (1)
  - DEAFNESS [None]
